FAERS Safety Report 9148653 (Version 1)
Quarter: 2013Q1

REPORT INFORMATION
  Report Type: Spontaneous
  Country: US (occurrence: US)
  Receive Date: 20130308
  Receipt Date: 20130308
  Transmission Date: 20140127
  Serious: No
  Sender: FDA-Public Use
  Company Number: US-ENDO PHARMACEUTICALS INC.-OPCR20121873

PATIENT
  Sex: Male

DRUGS (8)
  1. OPANA ER 30MG [Suspect]
     Indication: BACK DISORDER
     Route: 048
     Dates: start: 20120910
  2. OPANA ER 30MG [Suspect]
     Indication: HEPATIC CIRRHOSIS
  3. OPANA ER 30MG [Suspect]
     Indication: BILIARY CIRRHOSIS
  4. OPANA ER 30MG [Suspect]
     Indication: GASTRIC ULCER
  5. OPANA ER 30MG [Concomitant]
     Indication: BACK DISORDER
     Route: 048
     Dates: end: 20120909
  6. OPANA ER 30MG [Concomitant]
     Indication: HEPATIC CIRRHOSIS
  7. OPANA ER 30MG [Concomitant]
     Indication: BILIARY CIRRHOSIS
  8. OPANA ER 30MG [Concomitant]
     Indication: GASTRIC ULCER

REACTIONS (4)
  - Urinary straining [Not Recovered/Not Resolved]
  - Genital pain [Not Recovered/Not Resolved]
  - Male sexual dysfunction [Not Recovered/Not Resolved]
  - Nausea [Not Recovered/Not Resolved]
